FAERS Safety Report 12435704 (Version 1)
Quarter: 2016Q2

REPORT INFORMATION
  Report Type: Spontaneous
  Country: US (occurrence: US)
  Receive Date: 20160603
  Receipt Date: 20160603
  Transmission Date: 20160815
  Serious: No
  Sender: FDA-Public Use
  Company Number: US-ROCHE-1624371

PATIENT
  Sex: Female

DRUGS (3)
  1. XELODA [Suspect]
     Active Substance: CAPECITABINE
     Indication: BREAST CANCER STAGE IV
     Dosage: 3 PILLS IN AM AND 3 IN PM
     Route: 065
     Dates: start: 201504, end: 201505
  2. XELODA [Suspect]
     Active Substance: CAPECITABINE
     Dosage: 3 PILLS IN AM AND 2 IN PM
     Route: 065
     Dates: start: 201505, end: 20150728
  3. XELODA [Suspect]
     Active Substance: CAPECITABINE
     Dosage: 2 PILLS IN THE AM AND 2 IN PM, 1 WEEK ON 1 OFF
     Route: 065
     Dates: start: 20150728

REACTIONS (11)
  - Skin exfoliation [Recovering/Resolving]
  - Balance disorder [Not Recovered/Not Resolved]
  - Blister [Recovering/Resolving]
  - Gait disturbance [Not Recovered/Not Resolved]
  - Skin fissures [Recovering/Resolving]
  - Pain in extremity [Recovering/Resolving]
  - Dry skin [Recovering/Resolving]
  - Confusional state [Unknown]
  - Decreased appetite [Unknown]
  - Nausea [Unknown]
  - Weight decreased [Unknown]
